FAERS Safety Report 8167095-3 (Version None)
Quarter: 2012Q1

REPORT INFORMATION
  Report Type: 
  Country: None (occurrence: None)
  Receive Date: 20120227
  Receipt Date: 20120222
  Transmission Date: 20120608
  Serious: Yes (Death, Hospitalization)
  Sender: FDA-Public Use
  Company Number: DE-JNJFOC-20120210619

PATIENT
  Age: 65 Year
  Sex: Female

DRUGS (22)
  1. TIAPRIDE [Suspect]
     Indication: PRODUCT USED FOR UNKNOWN INDICATION
     Route: 048
     Dates: start: 20110927, end: 20110929
  2. PROPOFOL [Concomitant]
     Route: 042
     Dates: start: 20110929, end: 20110929
  3. TIAPRIDE [Suspect]
     Route: 048
     Dates: start: 20110924, end: 20110925
  4. MELPERONE [Suspect]
     Route: 048
     Dates: start: 20110928
  5. KONAKION [Concomitant]
     Route: 048
     Dates: start: 20110928, end: 20110928
  6. SODIUM POLYSTYRENE SULFONATE [Concomitant]
     Route: 048
     Dates: start: 20110923, end: 20110929
  7. BENFOTIAMINE [Concomitant]
     Route: 048
     Dates: start: 20110923, end: 20110929
  8. RISPERIDONE [Suspect]
     Indication: PRODUCT USED FOR UNKNOWN INDICATION
     Route: 065
     Dates: end: 20110823
  9. METFORMIN HCL [Concomitant]
     Route: 048
     Dates: start: 20110919, end: 20110929
  10. JANUVIA [Concomitant]
     Route: 048
     Dates: start: 20110919, end: 20110929
  11. OXAZEPAM [Concomitant]
     Route: 065
     Dates: end: 20110823
  12. TIAPRIDE [Suspect]
     Route: 048
     Dates: start: 20110926, end: 20110926
  13. MELPERONE [Suspect]
     Indication: PRODUCT USED FOR UNKNOWN INDICATION
     Route: 048
     Dates: start: 20110919, end: 20110925
  14. MELPERONE [Suspect]
     Route: 048
     Dates: start: 20110926, end: 20110926
  15. MELPERONE [Suspect]
     Route: 048
     Dates: start: 20110919, end: 20110925
  16. BISOPROLOL FUMARATE [Concomitant]
     Route: 048
     Dates: start: 20110919, end: 20110929
  17. AKINETON [Concomitant]
     Route: 065
     Dates: end: 20110823
  18. MIRTAZAPINE [Concomitant]
     Route: 065
     Dates: end: 20110823
  19. MELPERONE [Suspect]
     Route: 048
     Dates: start: 20110927, end: 20110927
  20. TORSEMIDE [Suspect]
     Indication: PRODUCT USED FOR UNKNOWN INDICATION
     Route: 048
     Dates: start: 20110919, end: 20110929
  21. CALCIUM [Concomitant]
     Route: 065
     Dates: start: 20110926, end: 20110929
  22. PIPAMPERON [Suspect]
     Indication: PRODUCT USED FOR UNKNOWN INDICATION
     Route: 048
     Dates: start: 20110929, end: 20110929

REACTIONS (8)
  - ELECTROCARDIOGRAM QT PROLONGED [None]
  - CARDIAC FAILURE [None]
  - ELECTROLYTE IMBALANCE [None]
  - OXYGEN SATURATION DECREASED [None]
  - HYPOTENSION [None]
  - SEDATION [None]
  - DIZZINESS [None]
  - DELIRIUM [None]
